FAERS Safety Report 4893209-4 (Version None)
Quarter: 2006Q1

REPORT INFORMATION
  Report Type: 
  Country: None (occurrence: None)
  Receive Date: 20060127
  Receipt Date: 20060118
  Transmission Date: 20060701
  Serious: Yes (Other)
  Sender: FDA-Public Use
  Company Number: JP-BOEHRINGER INGELHEIM PHARMACEUTICALS, INC.-2006-BP-00642NB

PATIENT
  Age: 79 Year
  Sex: Male

DRUGS (3)
  1. MICARDIS [Suspect]
     Indication: HYPERTENSION
     Route: 048
     Dates: start: 20051207, end: 20060118
  2. ZYLORIC [Concomitant]
     Route: 048
     Dates: start: 19980319
  3. ANGINAL [Concomitant]
     Route: 048
     Dates: start: 19920101

REACTIONS (1)
  - SUPRAVENTRICULAR EXTRASYSTOLES [None]
